FAERS Safety Report 9192028 (Version 1)
Quarter: 2013Q1

REPORT INFORMATION
  Report Type: Spontaneous
  Country: GB (occurrence: None)
  Receive Date: 20130325
  Receipt Date: 20130325
  Transmission Date: 20140127
  Serious: Yes (Hospitalization)
  Sender: FDA-Public Use
  Company Number: 2013MPI00175

PATIENT
  Sex: Male

DRUGS (1)
  1. ADCETRIS (BRENTUXIMAB VEDOTIN) INJECTION [Suspect]
     Indication: HODGKIN^S DISEASE
     Dates: start: 201107

REACTIONS (4)
  - Hyperhidrosis [None]
  - Lower respiratory tract infection [None]
  - Neuropathy peripheral [None]
  - Herpes zoster [None]
